FAERS Safety Report 8134041 (Version 10)
Quarter: 2013Q4

REPORT INFORMATION
  Report Type: Spontaneous
  Country: None (occurrence: GB)
  Receive Date: 20110913
  Receipt Date: 20131202
  Transmission Date: 20140711
  Serious: Yes (Hospitalization, Other)
  Sender: FDA-Public Use
  Company Number: GB-BAXTER-2011BH028584

PATIENT
  Age: 34 Year
  Sex: Female
  Weight: 99.8 kg

DRUGS (10)
  1. KIOVIG HUMAN NORMAL IMMUNOGLOBULIN (IVIG) 10% [Suspect]
     Indication: HAEMATOLOGY TEST ABNORMAL
     Route: 041
     Dates: start: 20100922, end: 20100923
  2. LANSOPRAZOLE [Suspect]
     Indication: GASTROOESOPHAGEAL REFLUX PROPHYLAXIS
     Route: 048
     Dates: start: 20100907, end: 20100928
  3. NORETHINDRONE [Suspect]
     Indication: PRODUCT USED FOR UNKNOWN INDICATION
     Route: 048
     Dates: start: 20100922, end: 20100928
  4. RITUXIMAB [Suspect]
     Indication: HAEMATOLOGY TEST ABNORMAL
     Route: 041
     Dates: start: 20100917, end: 20100924
  5. TRAXYL [Suspect]
     Indication: PRODUCT USED FOR UNKNOWN INDICATION
     Route: 048
     Dates: start: 20100922, end: 20100928
  6. DEXAMETHASONE [Suspect]
     Indication: ANTIEMETIC SUPPORTIVE CARE
     Route: 048
     Dates: start: 20100907, end: 20100910
  7. DEXAMETHASONE [Suspect]
     Dates: start: 20100907, end: 20101009
  8. NPLATE [Suspect]
     Indication: IMMUNE THROMBOCYTOPENIC PURPURA
     Route: 058
     Dates: start: 20100920, end: 20100920
  9. ANTI-D IMMUNOGLOBULIN [Concomitant]
     Indication: IMMUNE THROMBOCYTOPENIC PURPURA
     Route: 065
  10. VINCRISTINE SULFATE [Concomitant]
     Indication: PRODUCT USED FOR UNKNOWN INDICATION
     Route: 065

REACTIONS (10)
  - Rash maculo-papular [Recovered/Resolved]
  - Rash erythematous [Recovered/Resolved]
  - Purpura [Recovered/Resolved]
  - Haemoglobin decreased [Unknown]
  - Melaena [Unknown]
  - Rectal haemorrhage [Unknown]
  - Vaginal haemorrhage [Unknown]
  - Haemorrhage [Unknown]
  - Arthralgia [Unknown]
  - Blood blister [Unknown]
